FAERS Safety Report 6930110-6 (Version None)
Quarter: 2010Q3

REPORT INFORMATION
  Report Type: 
  Country: None (occurrence: None)
  Receive Date: 20100818
  Receipt Date: 20091123
  Transmission Date: 20110219
  Serious: No
  Sender: FDA-Public Use
  Company Number: US-ASTRAZENECA-2009SE28196

PATIENT
  Age: 52 Year
  Sex: Female

DRUGS (2)
  1. IRESSA [Suspect]
     Route: 048
  2. MORPHINE [Concomitant]
     Indication: PAIN

REACTIONS (2)
  - DRUG DOSE OMISSION [None]
  - NAUSEA [None]
